FAERS Safety Report 4894454-4 (Version None)
Quarter: 2006Q1

REPORT INFORMATION
  Report Type: 
  Country: None (occurrence: None)
  Receive Date: 20060127
  Receipt Date: 20050928
  Transmission Date: 20060701
  Serious: Yes (Hospitalization, Disabling)
  Sender: FDA-Public Use
  Company Number: US-ROCHE-419592

PATIENT
  Age: 33 Year
  Sex: Female
  Weight: 61.2 kg

DRUGS (2)
  1. ACCUTANE [Suspect]
     Route: 048
     Dates: start: 19970922, end: 19971115
  2. ORTHO TRI-CYCLEN [Concomitant]
     Route: 048

REACTIONS (14)
  - ANHEDONIA [None]
  - ANXIETY [None]
  - ASTHMA [None]
  - COLITIS [None]
  - COLITIS ULCERATIVE [None]
  - GASTROINTESTINAL DISORDER [None]
  - GASTROOESOPHAGEAL REFLUX DISEASE [None]
  - HYPERSENSITIVITY [None]
  - INFLAMMATORY BOWEL DISEASE [None]
  - INTESTINAL HAEMORRHAGE [None]
  - NAUSEA [None]
  - PHARMACEUTICAL PRODUCT COMPLAINT [None]
  - RESPIRATORY DISORDER [None]
  - VOMITING [None]
